FAERS Safety Report 15783032 (Version 1)
Quarter: 2019Q1

REPORT INFORMATION
  Report Type: Spontaneous
  Country: FR (occurrence: FR)
  Receive Date: 20190102
  Receipt Date: 20190102
  Transmission Date: 20190417
  Serious: Yes (Other)
  Sender: FDA-Public Use
  Company Number: FR-BAUSCH-BL-2018-035856

PATIENT
  Age: 85 Year
  Sex: Female
  Weight: 50 kg

DRUGS (7)
  1. CARTEOL LP 2% COLLYRE A LIBERATION PROLONGEE [Suspect]
     Active Substance: CARTEOLOL
     Indication: OCULAR HYPERTENSION
     Dosage: PROLONGED RELEASE EYE DROPS
     Route: 047
     Dates: start: 20180205
  2. LACRIFLUID [Suspect]
     Active Substance: CARBOMER
     Indication: DRY EYE
     Route: 047
     Dates: start: 20180205
  3. DIFFU K [Suspect]
     Active Substance: POTASSIUM CHLORIDE
     Indication: PROPHYLAXIS
     Route: 048
     Dates: start: 2016
  4. LIPOSIC GEL OPHTALMIQUE [Suspect]
     Active Substance: CARBOMER
     Indication: DRY EYE
     Route: 047
     Dates: start: 20180205
  5. IKERVIS [Suspect]
     Active Substance: CYCLOSPORINE
     Indication: KERATITIS
     Dosage: EYE DROPS IN EMULSION IN SINGLE-DOSE CONTAINER
     Route: 047
     Dates: start: 201712
  6. PREDNISOLONE. [Suspect]
     Active Substance: PREDNISOLONE
     Indication: SJOGREN^S SYNDROME
     Route: 048
     Dates: start: 2016
  7. CACIT VITAMINE D3 [Suspect]
     Active Substance: CALCIUM CARBONATE\CHOLECALCIFEROL
     Indication: PROPHYLAXIS
     Route: 048
     Dates: start: 2016

REACTIONS (1)
  - Hypertension [Recovering/Resolving]

NARRATIVE: CASE EVENT DATE: 20180120
